FAERS Safety Report 8140439-4 (Version None)
Quarter: 2012Q1

REPORT INFORMATION
  Report Type: 
  Country: None (occurrence: None)
  Receive Date: 20120216
  Receipt Date: 20120209
  Transmission Date: 20120608
  Serious: Yes (Other)
  Sender: FDA-Public Use
  Company Number: US-PFIZER INC-2012037013

PATIENT
  Age: 45 Year
  Sex: Female

DRUGS (1)
  1. EPIPEN [Suspect]

REACTIONS (5)
  - INJECTION SITE DISCOLOURATION [None]
  - ACCIDENTAL EXPOSURE [None]
  - INJECTION SITE ANAESTHESIA [None]
  - EXPIRED DRUG ADMINISTERED [None]
  - INJURY ASSOCIATED WITH DEVICE [None]
